FAERS Safety Report 19823160 (Version 1)
Quarter: 2021Q3

REPORT INFORMATION
  Report Type: Other
  Country: IT (occurrence: IT)
  Receive Date: 20210913
  Receipt Date: 20210913
  Transmission Date: 20211014
  Serious: Yes (Hospitalization, Other)
  Sender: FDA-Public Use
  Company Number: IT-COLLEGIUM PHARMACEUTICAL, INC.-2021CGM01018

PATIENT
  Age: 71 Year
  Sex: Male

DRUGS (11)
  1. EFEXOR [Concomitant]
     Active Substance: VENLAFAXINE HYDROCHLORIDE
  2. CISPLATIN. [Concomitant]
     Active Substance: CISPLATIN
  3. TAPENTADOL [Suspect]
     Active Substance: TAPENTADOL
     Indication: PAIN
     Dosage: 1 DOSAGE FORM, 1X/DAY
     Route: 048
     Dates: start: 20210101, end: 20210726
  4. LASIX [Concomitant]
     Active Substance: FUROSEMIDE
  5. GEMCITABINE. [Concomitant]
     Active Substance: GEMCITABINE
     Dosage: UNK
     Dates: start: 20200910
  6. NALAPRES [Concomitant]
  7. PEMETREXED DISODIUM [Concomitant]
     Active Substance: PEMETREXED DISODIUM
     Dosage: UNK
     Dates: start: 20200608
  8. LORAZEPAM. [Concomitant]
     Active Substance: LORAZEPAM
  9. AMLODIPINE [Concomitant]
     Active Substance: AMLODIPINE BESYLATE
  10. PREDNISONE. [Concomitant]
     Active Substance: PREDNISONE
     Dosage: UNK
     Dates: start: 20200608
  11. CARBOPLATIN. [Concomitant]
     Active Substance: CARBOPLATIN
     Dosage: UNK
     Dates: start: 20200608

REACTIONS (1)
  - Ileus paralytic [Recovering/Resolving]

NARRATIVE: CASE EVENT DATE: 20210726
